FAERS Safety Report 4386120-9 (Version None)
Quarter: 2004Q2

REPORT INFORMATION
  Report Type: 
  Country: None (occurrence: None)
  Receive Date: 20040625
  Receipt Date: 20040625
  Transmission Date: 20050107
  Serious: No
  Sender: FDA-Public Use
  Company Number: None

PATIENT
  Age: 50 Year
  Sex: Female
  Weight: 45 kg

DRUGS (1)
  1. HEPARIN [Suspect]
     Indication: ANGINA UNSTABLE
     Dosage: IV DRIP
     Route: 041
     Dates: start: 20030827, end: 20030905

REACTIONS (7)
  - ACTIVATED PARTIAL THROMBOPLASTIN TIME PROLONGED [None]
  - AORTIC VALVE REPLACEMENT [None]
  - DIALYSIS [None]
  - GASTROINTESTINAL HAEMORRHAGE [None]
  - MITRAL VALVE REPLACEMENT [None]
  - POST PROCEDURAL COMPLICATION [None]
  - SEPSIS [None]
